APPROVED DRUG PRODUCT: MELOXICAM
Active Ingredient: MELOXICAM
Strength: 15MG
Dosage Form/Route: TABLET;ORAL
Application: A077930 | Product #002
Applicant: IMPAX LABORATORIES INC
Approved: Jul 19, 2006 | RLD: No | RS: No | Type: DISCN